FAERS Safety Report 24323265 (Version 6)
Quarter: 2025Q1

REPORT INFORMATION
  Report Type: Spontaneous
  Country: KR (occurrence: KR)
  Receive Date: 20240916
  Receipt Date: 20250304
  Transmission Date: 20250408
  Serious: No
  Sender: PFIZER
  Company Number: KR-PFIZER INC-PV202400119517

PATIENT
  Age: 14 Year
  Sex: Male

DRUGS (1)
  1. GENOTROPIN [Suspect]
     Active Substance: SOMATROPIN

REACTIONS (6)
  - Injection site haemorrhage [Unknown]
  - Device use issue [Unknown]
  - Needle issue [Unknown]
  - Device issue [Unknown]
  - Device breakage [Unknown]
  - Device material issue [Unknown]
